FAERS Safety Report 9135936 (Version 1)
Quarter: 2013Q1

REPORT INFORMATION
  Report Type: Spontaneous
  Country: US (occurrence: US)
  Receive Date: 20130304
  Receipt Date: 20130304
  Transmission Date: 20140127
  Serious: No
  Sender: FDA-Public Use
  Company Number: US-ABBOTT-12P-163-1009728-00

PATIENT
  Age: 68 Year
  Sex: Male
  Weight: 65.83 kg

DRUGS (4)
  1. ANDROGEL [Suspect]
     Indication: BLOOD TESTOSTERONE DECREASED
     Dosage: 1 PACKET
     Route: 061
     Dates: start: 201205, end: 20121110
  2. ANDROGEL [Suspect]
     Dosage: FEW YEARS TAKEN, PATIENT STOPPED MEDICATION
     Route: 061
     Dates: start: 2008, end: 2008
  3. PLAVIX [Concomitant]
     Indication: PRODUCT USED FOR UNKNOWN INDICATION
  4. CRESTOR [Concomitant]
     Indication: PRODUCT USED FOR UNKNOWN INDICATION

REACTIONS (1)
  - Prostatic specific antigen increased [Not Recovered/Not Resolved]
